FAERS Safety Report 20815888 (Version 1)
Quarter: 2022Q2

REPORT INFORMATION
  Report Type: Spontaneous
  Country: US (occurrence: US)
  Receive Date: 20220511
  Receipt Date: 20220511
  Transmission Date: 20220721
  Serious: No
  Sender: FDA-Public Use
  Company Number: US-G1-000514

PATIENT
  Sex: Female

DRUGS (4)
  1. COSELA [Suspect]
     Active Substance: TRILACICLIB DIHYDROCHLORIDE
     Indication: Myelosuppression
     Dosage: RECEIVED COSELA AT A DOSE OF 460 MG VIA PORT ON DAY 2 AND 3 OF CYCLE 1 ON MARCH 23RD AND 24TH
     Dates: start: 20220323, end: 20220324
  2. 1325315 (GLOBALC3Sep21): Carboplatin [Concomitant]
     Dosage: CYCLE 1
     Dates: start: 20220322, end: 20220324
  3. 1326091 (GLOBALC3Sep21): Etoposide [Concomitant]
     Dosage: CYCLE 1
     Dates: start: 20220322, end: 20220324
  4. 3192908 (GLOBALC3Sep21): Tecentriq [Concomitant]
     Dosage: CYCLE 1
     Dates: start: 20220322, end: 20220324

REACTIONS (1)
  - Incorrect dose administered [Unknown]
